FAERS Safety Report 4583740-3 (Version None)
Quarter: 2005Q1

REPORT INFORMATION
  Report Type: 
  Country: None (occurrence: None)
  Receive Date: 20050211
  Receipt Date: 20050201
  Transmission Date: 20050727
  Serious: Yes (Hospitalization)
  Sender: FDA-Public Use
  Company Number: CIP05000231

PATIENT
  Age: 78 Year
  Sex: Male

DRUGS (4)
  1. MACRODANTIN [Suspect]
     Indication: BACTERIA URINE IDENTIFIED
     Dosage: 100 MG TWICE DAILY, ORAL
     Route: 048
     Dates: start: 19980101
  2. NITROFURANTOIN [Suspect]
     Indication: BACTERIA URINE IDENTIFIED
     Dosage: ORAL
     Route: 048
     Dates: start: 20040101
  3. CHOLESTEROL (CHOLESTEROL) [Concomitant]
  4. ACETYLSALICYLIC ACID SRT [Concomitant]

REACTIONS (6)
  - CARDIAC MURMUR [None]
  - COUGH [None]
  - CRACKLES LUNG [None]
  - LOWER RESPIRATORY TRACT INFLAMMATION [None]
  - LUNG DISORDER [None]
  - LUNG INFECTION [None]
